FAERS Safety Report 8284596-8 (Version None)
Quarter: 2012Q2

REPORT INFORMATION
  Report Type: 
  Country: None (occurrence: None)
  Receive Date: 20120413
  Receipt Date: 20110602
  Transmission Date: 20120825
  Serious: No
  Sender: FDA-Public Use
  Company Number: US-ASTRAZENECA-2010SE08828

PATIENT
  Age: 52 Year
  Sex: Female

DRUGS (2)
  1. DEXILANT [Concomitant]
  2. NEXIUM [Suspect]
     Route: 048
     Dates: start: 20050101

REACTIONS (3)
  - DYSPEPSIA [None]
  - MALAISE [None]
  - DRUG DOSE OMISSION [None]
